FAERS Safety Report 14667838 (Version 1)
Quarter: 2018Q1

REPORT INFORMATION
  Report Type: Spontaneous
  Country: US (occurrence: US)
  Receive Date: 20180320
  Receipt Date: 20180320
  Transmission Date: 20180509
  Serious: No
  Sender: FDA-Public Use
  Company Number: None

PATIENT
  Age: 56 Year
  Sex: Female

DRUGS (1)
  1. DAPTOMYCIN 560MG PFIZER [Suspect]
     Active Substance: DAPTOMYCIN
     Indication: INFECTION
     Dosage: 560 MG Q 24 HRS IV PUSH
     Route: 042
     Dates: start: 20180315

REACTIONS (4)
  - Tremor [None]
  - Micturition urgency [None]
  - Infusion related reaction [None]
  - Chills [None]

NARRATIVE: CASE EVENT DATE: 20180318
